FAERS Safety Report 25135367 (Version 1)
Quarter: 2025Q1

REPORT INFORMATION
  Report Type: Report from Study
  Country: CZ (occurrence: CZ)
  Receive Date: 20250328
  Receipt Date: 20250328
  Transmission Date: 20250409
  Serious: Yes (Other)
  Sender: TEVA
  Company Number: CZ-TEVA-VS-3313424

PATIENT
  Age: 15 Year
  Sex: Male

DRUGS (1)
  1. TOPIRAMATE [Suspect]
     Active Substance: TOPIRAMATE
     Indication: Product used for unknown indication
     Route: 065

REACTIONS (1)
  - Mental impairment [Recovered/Resolved]
